FAERS Safety Report 8042313-0 (Version None)
Quarter: 2012Q1

REPORT INFORMATION
  Report Type: 
  Country: None (occurrence: None)
  Receive Date: 20120112
  Receipt Date: 20120109
  Transmission Date: 20120608
  Serious: Yes (Hospitalization, Other)
  Sender: FDA-Public Use
  Company Number: GB-BAYER-2011-122992

PATIENT
  Age: 5 Month
  Sex: Male

DRUGS (2)
  1. XOLAIR [Suspect]
     Dosage: 375 MG, Q2WK
     Route: 064
     Dates: start: 20090901, end: 20100920
  2. MIRENA [Suspect]
     Route: 064

REACTIONS (4)
  - SEPSIS [None]
  - HYPERBILIRUBINAEMIA [None]
  - JOINT DISLOCATION [None]
  - JAUNDICE NEONATAL [None]
